FAERS Safety Report 8853119 (Version 1)
Quarter: 2012Q4

REPORT INFORMATION
  Report Type: 
  Country: GB (occurrence: GB)
  Receive Date: 20121022
  Receipt Date: 20121022
  Transmission Date: 20130627
  Serious: Yes (Other)
  Sender: FDA-Public Use
  Company Number: GB-WATSON-2012-17631

PATIENT
  Age: 64 Year
  Sex: Female
  Weight: 65.31 kg

DRUGS (3)
  1. TERBINAFINE HYDROCHLORIDE [Suspect]
     Indication: TINEA PEDIS
     Dosage: 250 mg, daily
     Route: 048
     Dates: start: 20120803, end: 20120921
  2. ZANTAC [Concomitant]
     Indication: PRODUCT USED FOR UNKNOWN INDICATION
     Dosage: Stopped temporarily
     Route: 065
  3. FEXOFENADINE HYDROCHLORIDE [Concomitant]
     Indication: PRODUCT USED FOR UNKNOWN INDICATION
     Dosage: Stopped temporarily
     Route: 065

REACTIONS (10)
  - Headache [Recovering/Resolving]
  - Paraesthesia oral [Not Recovered/Not Resolved]
  - Nausea [Recovering/Resolving]
  - Pyrexia [Recovering/Resolving]
  - Chromaturia [Recovering/Resolving]
  - Photophobia [Recovering/Resolving]
  - Influenza like illness [Recovering/Resolving]
  - Food aversion [Recovering/Resolving]
  - Hearing impaired [Recovering/Resolving]
  - Faeces pale [Recovering/Resolving]
